FAERS Safety Report 25724308 (Version 2)
Quarter: 2025Q3

REPORT INFORMATION
  Report Type: Spontaneous
  Country: EU (occurrence: EU)
  Receive Date: 20250826
  Receipt Date: 20250913
  Transmission Date: 20251020
  Serious: Yes (Other)
  Sender: AUROBINDO
  Company Number: EU-SOSE888-20252283

PATIENT
  Age: 74 Year
  Sex: Female
  Weight: 63 kg

DRUGS (10)
  1. GABAPENTIN [Suspect]
     Active Substance: GABAPENTIN
     Indication: Myelitis
     Dosage: 100 MILLIGRAM, 3 TIMES A DAY
     Route: 065
  2. PREGABALIN [Suspect]
     Active Substance: PREGABALIN
     Indication: Myelitis
     Dosage: 75 MILLIGRAM, ONCE A DAY
     Route: 065
  3. ACETYLCARNITINE [Suspect]
     Active Substance: ACETYLCARNITINE
     Indication: Myelitis
     Dosage: 1 DOSAGE FORM, ONCE A DAY (1 SACHET/DAY FOR 30 DAYS)
     Route: 065
  4. DEXAMETHASONE [Suspect]
     Active Substance: DEXAMETHASONE
     Indication: Myelitis
     Dosage: 8 MILLIGRAM, ONCE A DAY
     Route: 065
  5. DABIGATRAN [Concomitant]
     Active Substance: DABIGATRAN
     Indication: Product used for unknown indication
     Route: 065
  6. CHOLECALCIFEROL [Concomitant]
     Active Substance: CHOLECALCIFEROL
     Indication: Product used for unknown indication
     Route: 065
  7. FUROSEMIDE [Concomitant]
     Active Substance: FUROSEMIDE
     Indication: Product used for unknown indication
     Dosage: 1 DOSAGE FORM, ONCE A DAY
     Route: 065
  8. ATORVASTATIN\EZETIMIBE [Concomitant]
     Active Substance: ATORVASTATIN\EZETIMIBE
     Indication: Product used for unknown indication
     Dosage: 1 DOSAGE FORM, ONCE A DAY (ATORVASTATIN/EZETIMIBE 10/10 MG SOLID PHARMACEUTICAL DOSE FORM 1 DAY)
     Route: 065
  9. OLMESARTAN [Concomitant]
     Active Substance: OLMESARTAN
     Indication: Product used for unknown indication
     Route: 048
  10. BISOPROLOL [Concomitant]
     Active Substance: BISOPROLOL
     Indication: Product used for unknown indication
     Dosage: 2.5 MILLIGRAM, ONCE A DAY
     Route: 065

REACTIONS (5)
  - Myelitis [Recovering/Resolving]
  - Condition aggravated [Recovering/Resolving]
  - Insomnia [Recovering/Resolving]
  - Tremor [Recovered/Resolved]
  - Drug ineffective [Unknown]
